FAERS Safety Report 16349019 (Version 2)
Quarter: 2019Q2

REPORT INFORMATION
  Report Type: Spontaneous
  Country: US (occurrence: US)
  Receive Date: 20190523
  Receipt Date: 20190528
  Transmission Date: 20190711
  Serious: Yes (Hospitalization)
  Sender: FDA-Public Use
  Company Number: US-ROCHE-2322855

PATIENT
  Age: 75 Year
  Sex: Female

DRUGS (3)
  1. ACTEMRA [Suspect]
     Active Substance: TOCILIZUMAB
     Indication: RHEUMATOID ARTHRITIS
     Dosage: ONGOING, 162 MG/ 0.9 ML SYR
     Route: 058
     Dates: start: 20190118
  2. ACTEMRA [Suspect]
     Active Substance: TOCILIZUMAB
     Indication: RHEUMATOID ARTHRITIS
  3. NOVOLOG [Concomitant]
     Active Substance: INSULIN ASPART
     Route: 065

REACTIONS (2)
  - Rheumatoid arthritis [Unknown]
  - Kidney infection [Unknown]

NARRATIVE: CASE EVENT DATE: 201902
